FAERS Safety Report 12439598 (Version 1)
Quarter: 2016Q2

REPORT INFORMATION
  Report Type: Report from Study
  Country: ES (occurrence: ES)
  Receive Date: 20160606
  Receipt Date: 20160606
  Transmission Date: 20160815
  Serious: Yes (Other)
  Sender: FDA-Public Use
  Company Number: ES-ABBVIE-16P-144-1642479-00

PATIENT
  Age: 79 Year
  Sex: Female

DRUGS (1)
  1. DUODOPA [Suspect]
     Active Substance: CARBIDOPA\LEVODOPA
     Indication: PARKINSON^S DISEASE
     Route: 050
     Dates: start: 20150608

REACTIONS (3)
  - Anaemia [Unknown]
  - Deep vein thrombosis [Unknown]
  - Lacunar stroke [Unknown]

NARRATIVE: CASE EVENT DATE: 201605
